FAERS Safety Report 5541785-0 (Version None)
Quarter: 2007Q4

REPORT INFORMATION
  Report Type: 
  Country: None (occurrence: None)
  Receive Date: 20071210
  Receipt Date: 20071129
  Transmission Date: 20080405
  Serious: Yes (Hospitalization)
  Sender: FDA-Public Use
  Company Number: B0494691A

PATIENT
  Age: 60 Year
  Sex: Male
  Weight: 65 kg

DRUGS (30)
  1. PAXIL [Suspect]
     Indication: DEPRESSION
     Route: 048
     Dates: start: 20070118
  2. WINTERMIN [Suspect]
     Indication: DEPRESSION
     Route: 048
     Dates: start: 20070528, end: 20071018
  3. AMOXAPINE [Suspect]
     Indication: DEPRESSION
     Dosage: 50MG PER DAY
     Route: 048
     Dates: start: 20070524, end: 20070606
  4. VEGETAMIN A [Suspect]
     Indication: INSOMNIA
     Route: 048
     Dates: start: 20070528, end: 20070606
  5. VEGETAMIN-B [Suspect]
     Indication: INSOMNIA
     Route: 048
     Dates: start: 20070528, end: 20070606
  6. SOLANAX [Concomitant]
     Indication: DEPRESSION
     Dosage: 1.2MG PER DAY
     Route: 048
     Dates: start: 20070528, end: 20070606
  7. DEPAS [Concomitant]
     Indication: DEPRESSION
     Dosage: .5MG PER DAY
     Route: 048
     Dates: start: 20061209, end: 20070606
  8. DORAL [Concomitant]
     Indication: INSOMNIA
     Dosage: 15MG PER DAY
     Route: 048
     Dates: start: 20070528, end: 20070606
  9. ROHYPNOL [Concomitant]
     Indication: INSOMNIA
     Dosage: 2MG PER DAY
     Route: 048
     Dates: start: 20070528, end: 20070606
  10. MYSLEE [Concomitant]
     Indication: INSOMNIA
     Dosage: 10MG PER DAY
     Route: 048
     Dates: start: 20070528, end: 20070606
  11. TOLEDOMIN [Concomitant]
     Indication: DEPRESSION
     Route: 048
     Dates: start: 20061209
  12. SERTRALINE HYDROCHLORIDE [Concomitant]
     Indication: DEPRESSION
     Dosage: 25MG PER DAY
     Route: 048
     Dates: start: 20071002, end: 20071016
  13. LORAZEPAM [Concomitant]
     Indication: ANXIETY
     Route: 048
     Dates: start: 20070625, end: 20070724
  14. EURODIN [Concomitant]
     Indication: INSOMNIA
     Dosage: 2MG PER DAY
     Route: 048
     Dates: start: 20070710, end: 20070716
  15. HIRNAMIN [Concomitant]
     Indication: ANXIETY
     Route: 048
     Dates: start: 20070118, end: 20070606
  16. PROMETHAZINE [Concomitant]
     Indication: ANXIETY
     Route: 048
     Dates: start: 20070118, end: 20071018
  17. SEROQUEL [Concomitant]
     Indication: DEPRESSION
     Dosage: 25MG PER DAY
     Route: 048
     Dates: start: 20071019
  18. VANCOMYCIN [Concomitant]
     Dosage: 1G PER DAY
     Route: 042
     Dates: start: 20070606, end: 20070607
  19. FUROSEMIDE [Concomitant]
     Indication: POLYURIA
     Dosage: 20MG PER DAY
     Route: 042
     Dates: start: 20070607, end: 20070607
  20. SOLANAX [Concomitant]
     Dosage: .8MG PER DAY
     Route: 048
     Dates: start: 20070717, end: 20070726
  21. SOLANAX [Concomitant]
     Dosage: 1.2MG PER DAY
     Route: 048
     Dates: start: 20070727
  22. TOLEDOMIN [Concomitant]
     Dosage: 100MG PER DAY
     Route: 048
     Dates: start: 20070718, end: 20070729
  23. TOLEDOMIN [Concomitant]
     Dosage: 200MG PER DAY
     Route: 048
     Dates: start: 20070730, end: 20070827
  24. TOLEDOMIN [Concomitant]
     Dosage: 100MG PER DAY
     Route: 048
     Dates: start: 20070828
  25. ZOLOFT [Concomitant]
     Indication: DEPRESSION
     Dosage: 50MG PER DAY
     Route: 048
     Dates: start: 20071017, end: 20071022
  26. ZOLOFT [Concomitant]
     Dosage: 75MG PER DAY
     Route: 048
     Dates: start: 20071023, end: 20071031
  27. ZOLOFT [Concomitant]
     Dosage: 100MG PER DAY
     Route: 048
     Dates: start: 20071101
  28. DORAL [Concomitant]
     Dosage: 7.5MG PER DAY
     Route: 048
     Dates: start: 20070702, end: 20070702
  29. DORAL [Concomitant]
     Dosage: 15MG PER DAY
     Route: 048
     Dates: start: 20070703, end: 20070716
  30. DORAL [Concomitant]
     Dosage: 15MG PER DAY
     Route: 048
     Dates: start: 20070824

REACTIONS (10)
  - ALANINE AMINOTRANSFERASE INCREASED [None]
  - ASPARTATE AMINOTRANSFERASE INCREASED [None]
  - BLOOD ALKALINE PHOSPHATASE INCREASED [None]
  - C-REACTIVE PROTEIN INCREASED [None]
  - DRUG INTERACTION [None]
  - GAMMA-GLUTAMYLTRANSFERASE INCREASED [None]
  - HEPATIC ENZYME INCREASED [None]
  - NEUTROPHIL COUNT INCREASED [None]
  - PYREXIA [None]
  - WHITE BLOOD CELL COUNT INCREASED [None]
